FAERS Safety Report 15856666 (Version 2)
Quarter: 2022Q1

REPORT INFORMATION
  Report Type: Spontaneous
  Country: BR (occurrence: BR)
  Receive Date: 20190123
  Receipt Date: 20220125
  Transmission Date: 20220423
  Serious: Yes (Other)
  Sender: FDA-Public Use
  Company Number: BR-TEVA-2019-BR-1000996

PATIENT
  Age: 43 Year
  Sex: Female
  Weight: 64 kg

DRUGS (7)
  1. CARBOPLATIN [Suspect]
     Active Substance: CARBOPLATIN
     Indication: Ovarian neoplasm
     Dosage: 3RD CYCLE
     Route: 042
     Dates: start: 20190109
  2. PACLITAXEL [Suspect]
     Active Substance: PACLITAXEL
     Dosage: 14.4286 MILLIGRAM DAILY; 303 MG (ONCE EACH 21 DAYS)
     Route: 065
     Dates: start: 20181123
  3. ONDANSETRON [Concomitant]
     Active Substance: ONDANSETRON
  4. RANITIDINE [Concomitant]
     Active Substance: RANITIDINE
  5. DEXAMETHASONE [Concomitant]
     Active Substance: DEXAMETHASONE
  6. DIPHENHYDRAMINE [Concomitant]
     Active Substance: DIPHENHYDRAMINE
  7. DEXCHLORPHENIRAMINE [Concomitant]
     Active Substance: DEXCHLORPHENIRAMINE

REACTIONS (6)
  - Hypoxia [Recovered/Resolved]
  - Flushing [Recovered/Resolved]
  - Tachycardia [Recovered/Resolved]
  - Chest pain [Recovered/Resolved]
  - Dyspnoea [Recovered/Resolved]
  - Cough [Recovered/Resolved]

NARRATIVE: CASE EVENT DATE: 20190109
